FAERS Safety Report 5362214-6 (Version None)
Quarter: 2007Q2

REPORT INFORMATION
  Report Type: 
  Country: None (occurrence: None)
  Receive Date: 20070619
  Receipt Date: 20070606
  Transmission Date: 20071010
  Serious: Yes (Hospitalization, Disabling)
  Sender: FDA-Public Use
  Company Number: CA-ELI_LILLY_AND_COMPANY-CA200706001701

PATIENT
  Age: 11 Year
  Sex: Male
  Weight: 32.6 kg

DRUGS (2)
  1. SOMATROPIN [Suspect]
     Indication: GROWTH HORMONE DEFICIENCY
     Dosage: 0.96 MG, 6/W
     Route: 058
     Dates: start: 20031028, end: 20070129
  2. LEVOTHYROXINE SODIUM [Concomitant]
     Indication: HYPOTHYROIDISM
     Dates: start: 20040804

REACTIONS (2)
  - BALANCE DISORDER [None]
  - MEDULLOBLASTOMA RECURRENT [None]
